FAERS Safety Report 8534475-3 (Version None)
Quarter: 2012Q3

REPORT INFORMATION
  Report Type: 
  Country: None (occurrence: None)
  Receive Date: 20120724
  Receipt Date: 20120718
  Transmission Date: 20120928
  Serious: Yes (Hospitalization)
  Sender: FDA-Public Use
  Company Number: DE-ROCHE-1091168

PATIENT
  Sex: Female
  Weight: 67 kg

DRUGS (5)
  1. VOLTAREN [Concomitant]
     Indication: BONE PAIN
     Route: 048
  2. AVASTIN [Suspect]
     Indication: BREAST CANCER METASTATIC
     Route: 042
  3. OXYCODONE HYDROCHLORIDE [Concomitant]
     Indication: BONE PAIN
     Route: 048
  4. XELODA [Suspect]
     Indication: BREAST CANCER METASTATIC
     Route: 048
     Dates: end: 20120709
  5. PANTOPRAZOLE [Concomitant]
     Indication: PROPHYLAXIS AGAINST GASTROINTESTINAL ULCER
     Route: 048

REACTIONS (3)
  - HYPOTENSION [None]
  - DEHYDRATION [None]
  - HYPOTHYROIDISM [None]
